FAERS Safety Report 8033951-X (Version None)
Quarter: 2012Q1

REPORT INFORMATION
  Report Type: 
  Country: None (occurrence: None)
  Receive Date: 20120110
  Receipt Date: 20111228
  Transmission Date: 20120608
  Serious: Yes (Other)
  Sender: FDA-Public Use
  Company Number: ES-CELGENEUS-144-50794-11123697

PATIENT
  Age: 58 Year
  Sex: Male

DRUGS (3)
  1. VIDAZA [Suspect]
     Dosage: 25 MILLIGRAM/SQ. METER
     Route: 050
     Dates: start: 20110209, end: 20111031
  2. RED BLOOD CELLS [Concomitant]
     Route: 065
     Dates: start: 20110201, end: 20111001
  3. ANTIBIOTICS [Concomitant]
     Route: 061
     Dates: start: 20110901, end: 20110901

REACTIONS (3)
  - ANAEMIA [None]
  - TOXICITY TO VARIOUS AGENTS [None]
  - PNEUMONIA [None]
